FAERS Safety Report 8571715-9 (Version None)
Quarter: 2012Q3

REPORT INFORMATION
  Report Type: 
  Country: None (occurrence: None)
  Receive Date: 20120806
  Receipt Date: 20120802
  Transmission Date: 20120928
  Serious: Yes (Other)
  Sender: FDA-Public Use
  Company Number: PHFR2012IE002081

PATIENT
  Sex: Female
  Weight: 93 kg

DRUGS (4)
  1. CLOZARIL [Suspect]
     Dosage: 50MG MANE + 100MG NOCTE
     Route: 048
     Dates: start: 20120321, end: 20120327
  2. CLOZARIL [Suspect]
     Indication: SCHIZOPHRENIA
     Dosage: UNK UKN, UNK
     Route: 048
     Dates: start: 20120216
  3. OLANZAPINE [Concomitant]
     Dosage: 100 MG, DAILY
     Route: 048
     Dates: start: 20111231, end: 20120403
  4. INVEGA [Concomitant]

REACTIONS (4)
  - SIALOADENITIS [None]
  - TACHYCARDIA [None]
  - ASTHENIA [None]
  - SALIVARY GLAND NEOPLASM [None]
